FAERS Safety Report 14958979 (Version 1)
Quarter: 2018Q2

REPORT INFORMATION
  Report Type: Spontaneous
  Country: US (occurrence: US)
  Receive Date: 20180510
  Receipt Date: 20180510
  Transmission Date: 20180711
  Serious: Yes (Disabling)
  Sender: FDA-Public Use
  Company Number: None

PATIENT
  Age: 37 Year
  Sex: Female

DRUGS (5)
  1. SYNTHROID [Concomitant]
     Active Substance: LEVOTHYROXINE SODIUM
  2. IRON [Concomitant]
     Active Substance: IRON
  3. WOMEN^S DAILY VITAMIN [Concomitant]
  4. HAIRS NAILS AND SKIN VITAMIN [Concomitant]
  5. MIRENA [Suspect]
     Active Substance: LEVONORGESTREL
     Dates: start: 20161011, end: 20171011

REACTIONS (8)
  - Dysmenorrhoea [None]
  - Muscle spasms [None]
  - Palpitations [None]
  - Alopecia [None]
  - Depression [None]
  - Fear [None]
  - Mood swings [None]
  - Headache [None]

NARRATIVE: CASE EVENT DATE: 20161101
